FAERS Safety Report 5972415-1 (Version None)
Quarter: 2008Q4

REPORT INFORMATION
  Report Type: 
  Country: None (occurrence: None)
  Receive Date: 20081124
  Receipt Date: 20081110
  Transmission Date: 20090506
  Serious: Yes (Hospitalization, Other)
  Sender: FDA-Public Use
  Company Number: GB-DEXPHARM-20081312

PATIENT
  Age: 68 Year
  Sex: Male

DRUGS (5)
  1. OMEPRAZOLE [Suspect]
     Indication: DYSPEPSIA
     Dosage: 20 MG MILLIGRAM(S), 1 IN 1 DAY
     Route: 048
     Dates: start: 19830101, end: 20081002
  2. ATENOLOL [Concomitant]
  3. ATORVASTATIN CALCIUM [Concomitant]
  4. MELOXICAM [Concomitant]
  5. CO-AMILOZIDE [Concomitant]

REACTIONS (10)
  - BLOOD CALCIUM DECREASED [None]
  - BLOOD PARATHYROID HORMONE INCREASED [None]
  - BLOOD POTASSIUM DECREASED [None]
  - HYPOMAGNESAEMIA [None]
  - MALAISE [None]
  - PARAESTHESIA [None]
  - PARESIS [None]
  - TETANY [None]
  - VIRAL DIARRHOEA [None]
  - VOMITING [None]
